FAERS Safety Report 21190237 (Version 8)
Quarter: 2023Q1

REPORT INFORMATION
  Report Type: Spontaneous
  Country: JP (occurrence: JP)
  Receive Date: 20220809
  Receipt Date: 20230220
  Transmission Date: 20230417
  Serious: Yes (Death, Hospitalization, Other)
  Sender: FDA-Public Use
  Company Number: JP-ONO-2022JP018912AA

PATIENT
  Age: 55 Year
  Sex: Female
  Weight: 49.7 kg

DRUGS (6)
  1. BRAFTOVI [Suspect]
     Active Substance: ENCORAFENIB
     Indication: Malignant melanoma
     Dosage: UNK
     Route: 048
     Dates: start: 20210213, end: 20210607
  2. MEKTOVI [Suspect]
     Active Substance: BINIMETINIB
     Indication: Malignant melanoma
     Dosage: UNK
     Route: 048
     Dates: start: 20210213, end: 20210607
  3. OPDIVO [Suspect]
     Active Substance: NIVOLUMAB
     Indication: Malignant melanoma
     Dosage: 80 MG
     Route: 041
     Dates: start: 20210607, end: 20210824
  4. OPDIVO [Suspect]
     Active Substance: NIVOLUMAB
     Dosage: 480 MG
     Route: 041
     Dates: start: 20211001, end: 20211029
  5. YERVOY [Suspect]
     Active Substance: IPILIMUMAB
     Indication: Malignant melanoma
     Dosage: 165.9 MG
     Route: 041
     Dates: start: 20210607, end: 20210824
  6. MIROGABALIN BESYLATE [Concomitant]
     Active Substance: MIROGABALIN BESYLATE
     Indication: Prophylaxis
     Dosage: 5 MG, Q12H
     Route: 048
     Dates: start: 20210409, end: 20210609

REACTIONS (4)
  - Neoplasm progression [Fatal]
  - Adrenocortical insufficiency acute [Recovering/Resolving]
  - Immune-mediated hepatic disorder [Recovering/Resolving]
  - Rash [Recovering/Resolving]

NARRATIVE: CASE EVENT DATE: 20210614
